FAERS Safety Report 5756748-X (Version None)
Quarter: 2008Q2

REPORT INFORMATION
  Report Type: 
  Country: None (occurrence: None)
  Receive Date: 20080603
  Receipt Date: 20080522
  Transmission Date: 20081010
  Serious: Yes (Other)
  Sender: FDA-Public Use
  Company Number: TR-AMGEN-US283111

PATIENT
  Sex: Male
  Weight: 65 kg

DRUGS (3)
  1. ENBREL [Suspect]
     Indication: RHEUMATOID ARTHRITIS
     Route: 058
     Dates: start: 20071211, end: 20080303
  2. ISONIAZID [Concomitant]
     Indication: PROPHYLAXIS
     Route: 048
     Dates: start: 20071111, end: 20080303
  3. SULFASALAZINE [Concomitant]
     Indication: RHEUMATOID ARTHRITIS
     Route: 048
     Dates: start: 20020101, end: 20080303

REACTIONS (2)
  - BILE DUCT CANCER [None]
  - GAMMA-GLUTAMYLTRANSFERASE INCREASED [None]
